FAERS Safety Report 8250703-6 (Version None)
Quarter: 2012Q2

REPORT INFORMATION
  Report Type: 
  Country: None (occurrence: None)
  Receive Date: 20120402
  Receipt Date: 20120326
  Transmission Date: 20120825
  Serious: Yes (Other)
  Sender: FDA-Public Use
  Company Number: US-PFIZER INC-2012069850

PATIENT
  Sex: Female
  Weight: 56.689 kg

DRUGS (4)
  1. CYMBALTA [Concomitant]
     Indication: DEPRESSION
     Dosage: 90 MG, 1X/DAY
  2. ULTRAM [Concomitant]
     Indication: PAIN
     Dosage: 100 MG, 3X/DAY
  3. LYRICA [Suspect]
     Indication: FIBROMYALGIA
     Dosage: 150 MG, 3X/DAY
     Route: 048
     Dates: start: 20060101, end: 20120301
  4. SEROQUEL [Concomitant]
     Dosage: 100 MG, 1X/DAY

REACTIONS (11)
  - WITHDRAWAL SYNDROME [None]
  - DIZZINESS [None]
  - APHAGIA [None]
  - MALAISE [None]
  - INSOMNIA [None]
  - HYPOAESTHESIA [None]
  - VOMITING [None]
  - FEELING OF BODY TEMPERATURE CHANGE [None]
  - DISSOCIATION [None]
  - MIGRAINE [None]
  - NAUSEA [None]
